FAERS Safety Report 5950805-0 (Version None)
Quarter: 2008Q4

REPORT INFORMATION
  Report Type: 
  Country: None (occurrence: None)
  Receive Date: 20081022
  Receipt Date: 20080818
  Transmission Date: 20090506
  Serious: No
  Sender: FDA-Public Use
  Company Number: ALL1-2008-02327

PATIENT
  Age: 21 Year
  Sex: Male
  Weight: 63.5 kg

DRUGS (1)
  1. VYVANSE [Suspect]
     Indication: ATTENTION DEFICIT/HYPERACTIVITY DISORDER
     Dosage: 50 MG,1X/DAY:QD,ORAL
     Route: 048
     Dates: start: 20080401, end: 20080801

REACTIONS (1)
  - ALOPECIA [None]
